FAERS Safety Report 23183381 (Version 1)
Quarter: 2023Q4

REPORT INFORMATION
  Report Type: Spontaneous
  Country: US (occurrence: US)
  Receive Date: 20231114
  Receipt Date: 20231114
  Transmission Date: 20240110
  Serious: Yes (Other)
  Sender: FDA-Public Use
  Company Number: US-BEH-2021132966

PATIENT
  Sex: Female

DRUGS (2)
  1. HUMATE-P [Suspect]
     Active Substance: HUMAN COAGULATION FACTOR VIII/VON WILLEBRAND FACTOR COMPLEX
     Indication: Von Willebrand^s disease
     Route: 042
  2. HUMATE-P [Suspect]
     Active Substance: HUMAN COAGULATION FACTOR VIII/VON WILLEBRAND FACTOR COMPLEX
     Indication: Factor VIII deficiency

REACTIONS (2)
  - Retinal detachment [Not Recovered/Not Resolved]
  - Mydriasis [Not Recovered/Not Resolved]

NARRATIVE: CASE EVENT DATE: 20210615
